FAERS Safety Report 19963672 (Version 21)
Quarter: 2025Q2

REPORT INFORMATION
  Report Type: Report from Study
  Country: US (occurrence: US)
  Receive Date: 20211018
  Receipt Date: 20250403
  Transmission Date: 20250716
  Serious: Yes (Hospitalization)
  Sender: CHIESI
  Company Number: US-AMRYT PHARMACEUTICALS DAC-AEGR005281

PATIENT
  Age: 55 Year
  Sex: Female
  Weight: 45.351 kg

DRUGS (79)
  1. METRELEPTIN [Suspect]
     Active Substance: METRELEPTIN
     Indication: Acquired generalised lipodystrophy
     Dosage: 2.5 MILLIGRAM, QD
     Route: 058
     Dates: start: 20210917, end: 20210920
  2. INSULIN GLARGINE [Concomitant]
     Active Substance: INSULIN GLARGINE
     Indication: Diabetes mellitus
     Dosage: 20 INTERNATIONAL UNIT, QD PM
     Route: 058
     Dates: start: 20210317
  3. INSULIN GLARGINE [Concomitant]
     Active Substance: INSULIN GLARGINE
     Dosage: 20 INTERNATIONAL UNIT, TID WITH MEALS
     Route: 058
     Dates: start: 20210317, end: 20211117
  4. INSULIN GLARGINE [Concomitant]
     Active Substance: INSULIN GLARGINE
     Dosage: 24 INTERNATIONAL UNIT, QD PM
     Dates: start: 20211118, end: 20220725
  5. INSULIN GLARGINE [Concomitant]
     Active Substance: INSULIN GLARGINE
     Route: 058
     Dates: start: 20220726, end: 20240606
  6. INSULIN ASPART [Concomitant]
     Active Substance: INSULIN ASPART
     Indication: Diabetes mellitus
     Dosage: 5 INTERNATIONAL UNIT, TID W/ MEALS, 150-200:2 UNITS; 201-250: 4 UNITS; 251-300: 6 UNITS; 301-350: 8
     Route: 058
     Dates: start: 20210323, end: 20220315
  7. INSULIN ASPART [Concomitant]
     Active Substance: INSULIN ASPART
     Dosage: 6 UNITS, TID
     Route: 058
     Dates: start: 20220316
  8. INSULIN ASPART [Concomitant]
     Active Substance: INSULIN ASPART
     Route: 058
     Dates: start: 20210317
  9. AMITRIPTYLINE [Concomitant]
     Active Substance: AMITRIPTYLINE
     Indication: Depression
     Dosage: 25 MILLIGRAM, QD PM
     Route: 048
     Dates: start: 2018
  10. AMITRIPTYLINE [Concomitant]
     Active Substance: AMITRIPTYLINE
     Dosage: 25 MILLIGRAM, QD PM
     Route: 048
     Dates: start: 2021
  11. COLCHICINE [Concomitant]
     Active Substance: COLCHICINE
     Indication: Gout
     Dosage: 0.6 MILLIGRAM, QD
     Route: 048
     Dates: start: 2017, end: 20211213
  12. COLCHICINE [Concomitant]
     Active Substance: COLCHICINE
     Route: 048
     Dates: start: 20220713
  13. CITALOPRAM [Concomitant]
     Active Substance: CITALOPRAM
     Indication: Depression
     Dosage: 25 MILLIGRAM, QD
     Route: 048
     Dates: start: 2018, end: 20211213
  14. CITALOPRAM [Concomitant]
     Active Substance: CITALOPRAM
     Dosage: 30 MILLIGRAM, QD, AT BEDTIME
     Route: 048
  15. CITALOPRAM [Concomitant]
     Active Substance: CITALOPRAM
     Dosage: 30 MILLIGRAM, QD
     Route: 048
     Dates: start: 20211220, end: 20211220
  16. CITALOPRAM [Concomitant]
     Active Substance: CITALOPRAM
     Dosage: 20 MILLIGRAM, QD
     Route: 048
     Dates: start: 20211224
  17. VITAMIN B12 [Concomitant]
     Active Substance: CYANOCOBALAMIN
     Indication: Anaemia vitamin B12 deficiency
     Route: 030
     Dates: start: 2018
  18. LEVOTHYROXINE [Concomitant]
     Active Substance: LEVOTHYROXINE
     Indication: Hypothyroidism
     Dosage: 250 UG, QD
     Route: 048
     Dates: start: 2010, end: 20220406
  19. LEVOTHYROXINE [Concomitant]
     Active Substance: LEVOTHYROXINE
     Dosage: 200 UG, QD
     Route: 048
     Dates: start: 20220407
  20. ONDANSETRON [Concomitant]
     Active Substance: ONDANSETRON
     Indication: Prophylaxis of nausea and vomiting
     Route: 048
     Dates: start: 2018
  21. ONDANSETRON [Concomitant]
     Active Substance: ONDANSETRON
     Indication: Vomiting
     Route: 048
  22. VITAMINS [Concomitant]
     Active Substance: VITAMINS
     Indication: Supplementation therapy
     Dosage: 2 TABLET, QD PM
     Route: 048
     Dates: start: 2010
  23. MELATONIN [Concomitant]
     Active Substance: MELATONIN
     Indication: Insomnia
     Dosage: 10 MILLIGRAM, QD PM
     Route: 048
     Dates: start: 201002
  24. MELATONIN [Concomitant]
     Active Substance: MELATONIN
     Dosage: 20 MILLIGRAM, QD AT BEDTIME
     Route: 048
  25. HYDROXYZINE HYDROCHLORIDE [Concomitant]
     Active Substance: HYDROXYZINE HYDROCHLORIDE
     Indication: Anxiety
     Route: 048
     Dates: start: 2018, end: 20210513
  26. AMLODIPINE [Concomitant]
     Active Substance: AMLODIPINE BESYLATE
     Indication: Hypertension
     Dosage: 5 MILLIGRAM, QD
     Route: 048
     Dates: start: 20210320, end: 20220124
  27. AMLODIPINE [Concomitant]
     Active Substance: AMLODIPINE BESYLATE
     Dosage: 2.5 MILLIGRAM, QD
     Route: 048
     Dates: start: 20220124
  28. FAMOTIDINE [Concomitant]
     Active Substance: FAMOTIDINE
     Indication: Gastrooesophageal reflux disease
     Dosage: 20 MILLIGRAM, QD
     Route: 048
     Dates: start: 20210320, end: 20211223
  29. FAMOTIDINE [Concomitant]
     Active Substance: FAMOTIDINE
     Dosage: 20 MILLIGRAM, BID
     Route: 048
     Dates: start: 20230621
  30. FAMOTIDINE [Concomitant]
     Active Substance: FAMOTIDINE
     Dosage: 10 MILLIGRAM, QD
     Route: 048
     Dates: start: 20211224, end: 20220228
  31. FAMOTIDINE [Concomitant]
     Active Substance: FAMOTIDINE
     Route: 042
     Dates: start: 20211214, end: 20211215
  32. GABAPENTIN [Concomitant]
     Active Substance: GABAPENTIN
     Indication: Neuropathy peripheral
     Dosage: 300 MILLIGRAM, TID
     Route: 048
     Dates: start: 20210323, end: 20211223
  33. GABAPENTIN [Concomitant]
     Active Substance: GABAPENTIN
     Dosage: 300 MILLIGRAM, QID, 2 CAPS XDAY AND 2 CAPS AT BEDTIME
     Route: 048
  34. GABAPENTIN [Concomitant]
     Active Substance: GABAPENTIN
     Dosage: 100 MILLIGRAM, QD
     Route: 048
     Dates: start: 20211224, end: 20220120
  35. GABAPENTIN [Concomitant]
     Active Substance: GABAPENTIN
     Dosage: 300 MILLIGRAM, QD
     Route: 048
     Dates: start: 20220121, end: 20220123
  36. GABAPENTIN [Concomitant]
     Active Substance: GABAPENTIN
     Dosage: 100 MILLIGRAM, BID
     Route: 048
     Dates: start: 20220124
  37. GABAPENTIN [Concomitant]
     Active Substance: GABAPENTIN
     Dosage: 300 MILLIGRAM, QD PM
     Route: 048
     Dates: start: 20220124
  38. LISINOPRIL [Concomitant]
     Active Substance: LISINOPRIL
     Indication: Hypertension
     Dosage: 10 MILLIGRAM, QD
     Route: 048
     Dates: start: 20210406, end: 20211213
  39. LISINOPRIL [Concomitant]
     Active Substance: LISINOPRIL
     Dosage: 5 MILLIGRAM, QD
     Route: 048
     Dates: start: 20220124, end: 20230621
  40. LISINOPRIL [Concomitant]
     Active Substance: LISINOPRIL
     Dosage: 2.5 MILLIGRAM, QD
     Route: 048
     Dates: start: 20230621
  41. POTASSIUM [Concomitant]
     Active Substance: POTASSIUM
     Indication: Hypokalaemia
     Dosage: 60 MEQ
     Route: 048
     Dates: start: 20210416, end: 20211213
  42. POTASSIUM [Concomitant]
     Active Substance: POTASSIUM
     Dosage: 60 MEQ, QD
     Route: 048
     Dates: start: 20220120, end: 20220123
  43. POTASSIUM [Concomitant]
     Active Substance: POTASSIUM
     Dosage: 20 MEQ, TID
     Route: 048
     Dates: start: 20220207
  44. TRAMADOL [Concomitant]
     Active Substance: TRAMADOL
     Indication: Gout
     Dosage: 100 MILLIGRAM, BID
     Route: 048
     Dates: start: 20210520
  45. TRAMADOL [Concomitant]
     Active Substance: TRAMADOL
     Indication: Pain
  46. ALLOPURINOL [Concomitant]
     Active Substance: ALLOPURINOL
     Indication: Gout
     Dosage: 450 MILLIGRAM, QD
     Dates: start: 20210511, end: 20211223
  47. ALLOPURINOL [Concomitant]
     Active Substance: ALLOPURINOL
     Dosage: 100 MILLIGRAM, QD
     Route: 048
     Dates: start: 20211224, end: 20220516
  48. ALLOPURINOL [Concomitant]
     Active Substance: ALLOPURINOL
     Dosage: 200 MILLIGRAM, QD
     Route: 048
     Dates: start: 20220517
  49. MAGNESIUM [Concomitant]
     Active Substance: MAGNESIUM
     Indication: Magnesium deficiency
     Dosage: 500 MILLIGRAM, QD
     Route: 048
     Dates: start: 20210629
  50. MAGNESIUM [Concomitant]
     Active Substance: MAGNESIUM
     Indication: Hypomagnesaemia
     Dosage: 500 MILLIGRAM, TID
     Route: 048
     Dates: start: 20210629
  51. BACTERIOSTATIC WATER [Concomitant]
     Active Substance: WATER
     Indication: Product used for unknown indication
  52. PEPCID [Concomitant]
     Active Substance: FAMOTIDINE
     Indication: Product used for unknown indication
  53. BACLOFEN [Concomitant]
     Active Substance: BACLOFEN
     Indication: Muscle spasms
  54. BACLOFEN [Concomitant]
     Active Substance: BACLOFEN
     Dosage: 5 MILLIGRAM, TID
     Route: 048
     Dates: start: 20211224, end: 20220228
  55. BACLOFEN [Concomitant]
     Active Substance: BACLOFEN
     Dosage: 2.5 MILLIGRAM, TID
     Route: 048
     Dates: start: 20211215, end: 20211224
  56. BACLOFEN [Concomitant]
     Active Substance: BACLOFEN
     Dosage: 5 MILLIGRAM, TID
     Dates: start: 20201007, end: 20211212
  57. BACLOFEN [Concomitant]
     Active Substance: BACLOFEN
     Route: 048
     Dates: start: 20220316
  58. CHOLECALCIFEROL [Concomitant]
     Active Substance: CHOLECALCIFEROL
     Indication: Vitamin supplementation
     Route: 048
     Dates: start: 20020920
  59. LOMOTIL [Concomitant]
     Active Substance: ATROPINE SULFATE\DIPHENOXYLATE HYDROCHLORIDE
     Indication: Diarrhoea
  60. LOMOTIL [Concomitant]
     Active Substance: ATROPINE SULFATE\DIPHENOXYLATE HYDROCHLORIDE
     Dosage: 1 TABLET, BID
     Route: 048
     Dates: start: 20210316
  61. NYSTOP [Concomitant]
     Active Substance: NYSTATIN
     Indication: Product used for unknown indication
     Dosage: UNK, BID FOR 30 DAYS
     Route: 061
  62. TYLENOL [Concomitant]
     Active Substance: ACETAMINOPHEN
     Indication: Pyrexia
     Route: 048
  63. CHOLESTYRAMINE [Concomitant]
     Active Substance: CHOLESTYRAMINE
     Indication: Product used for unknown indication
     Dosage: 1 DOSAGE FORM, BID
     Route: 048
  64. CYANOCOBALAMIN [Concomitant]
     Active Substance: CYANOCOBALAMIN
     Indication: Product used for unknown indication
     Route: 058
  65. GEMFIBROZIL [Concomitant]
     Active Substance: GEMFIBROZIL
     Indication: Product used for unknown indication
     Dosage: 600 MILLIGRAM, BID
     Route: 048
  66. POTASSIUM CHLORIDE [Concomitant]
     Active Substance: POTASSIUM CHLORIDE
     Indication: Product used for unknown indication
     Dosage: 45 MILLILITER, QD IN THE MORNING
     Route: 048
  67. CALCIUM ACETATE [Concomitant]
     Active Substance: CALCIUM ACETATE
     Indication: Hypophosphataemia
     Dosage: 667 MILLIGRAM, TID
     Route: 048
     Dates: start: 20210923, end: 20211123
  68. OXYCODONE [Concomitant]
     Active Substance: OXYCODONE
     Indication: Pain
     Route: 048
     Dates: start: 20211219, end: 20211224
  69. AMOXICILLIN\CLAVULANATE POTASSIUM [Concomitant]
     Active Substance: AMOXICILLIN\CLAVULANATE POTASSIUM
     Indication: Prophylaxis
     Dosage: 1 DOSAGE FORM, BID
     Route: 048
     Dates: start: 20211224, end: 20220111
  70. CALCIUM [Concomitant]
     Active Substance: CALCIUM
     Indication: Supplementation therapy
     Route: 048
     Dates: start: 20211223, end: 20211223
  71. OXYMETAZOLINE [Concomitant]
     Active Substance: OXYMETAZOLINE
     Indication: Nasal congestion
     Route: 045
     Dates: start: 20211217, end: 20211217
  72. MAGNESIUM SULFATE [Concomitant]
     Active Substance: MAGNESIUM SULFATE
     Indication: Supplementation therapy
     Route: 042
     Dates: start: 20211217, end: 20211217
  73. MAGNESIUM SULFATE [Concomitant]
     Active Substance: MAGNESIUM SULFATE
     Route: 042
     Dates: start: 20211224, end: 20211224
  74. IODIXANOL [Concomitant]
     Active Substance: IODIXANOL
     Indication: Angiogram
     Route: 042
     Dates: start: 20211219, end: 20211219
  75. IOPAMIDOL [Concomitant]
     Active Substance: IOPAMIDOL
     Indication: Cystoscopy
     Route: 042
     Dates: start: 20220107, end: 20220107
  76. IOTHALAMATE SODIUM [Concomitant]
     Active Substance: IOTHALAMATE SODIUM
     Indication: Angiogram
     Route: 042
     Dates: start: 20211220, end: 20211220
  77. NYSTATIN [Concomitant]
     Active Substance: NYSTATIN
     Indication: Fungal infection
     Dosage: 99999.99 UNIT/G
     Route: 061
     Dates: start: 20210316
  78. CLOBETASOL [Concomitant]
     Active Substance: CLOBETASOL
     Indication: Pruritus
     Dosage: 0.5 PERCENT, BID
     Route: 061
     Dates: start: 20211008
  79. TROSPIUM [Concomitant]
     Active Substance: TROSPIUM
     Indication: Bladder spasm
     Dosage: 20 MILLIGRAM, BID
     Dates: start: 20220415, end: 20221121

REACTIONS (19)
  - Acute kidney injury [Recovered/Resolved]
  - Dehydration [Unknown]
  - Subcapsular renal haematoma [Recovered/Resolved]
  - Urinary bladder rupture [Recovered/Resolved with Sequelae]
  - Sepsis [Recovered/Resolved]
  - Influenza like illness [Unknown]
  - Vomiting [Unknown]
  - Acute kidney injury [Recovered/Resolved]
  - Dehydration [Recovered/Resolved]
  - Acute kidney injury [Recovered/Resolved]
  - Diarrhoea [Recovered/Resolved]
  - Mental status changes [Recovered/Resolved]
  - Hyperkalaemia [Recovered/Resolved]
  - Anaemia [Recovered/Resolved]
  - Arteriovenous fistula [Recovered/Resolved]
  - Bladder spasm [Not Recovered/Not Resolved]
  - Fall [Recovered/Resolved]
  - Neuropathy peripheral [Not Recovered/Not Resolved]
  - Motor dysfunction [Not Recovered/Not Resolved]

NARRATIVE: CASE EVENT DATE: 20210921
